FAERS Safety Report 23107917 (Version 4)
Quarter: 2023Q4

REPORT INFORMATION
  Report Type: Spontaneous
  Country: US (occurrence: US)
  Receive Date: 20231026
  Receipt Date: 20231225
  Transmission Date: 20240110
  Serious: Yes (Other)
  Sender: FDA-Public Use
  Company Number: US-BRISTOL-MYERS SQUIBB COMPANY-2023-150838

PATIENT
  Age: 67 Year
  Sex: Female

DRUGS (2)
  1. REVLIMID [Suspect]
     Active Substance: LENALIDOMIDE
     Indication: Plasma cell myeloma
     Dosage: TAKE 1 CAPSULE BY MOUTH DAILY ON DAYS 1-28 OF A 28 DAY CYCLE, REPEAT
     Route: 048
     Dates: start: 20220216
  2. REVLIMID [Suspect]
     Active Substance: LENALIDOMIDE

REACTIONS (3)
  - Paraesthesia [Recovered/Resolved]
  - Tremor [Recovered/Resolved]
  - Clostridium difficile infection [Recovered/Resolved]
